FAERS Safety Report 5826916-7 (Version None)
Quarter: 2008Q3

REPORT INFORMATION
  Report Type: 
  Country: None (occurrence: None)
  Receive Date: 20080725
  Receipt Date: 20080711
  Transmission Date: 20090109
  Serious: Yes (Other)
  Sender: FDA-Public Use
  Company Number: DSJ-2008-08721

PATIENT
  Age: 65 Year
  Sex: Male
  Weight: 54.8 kg

DRUGS (10)
  1. OLMESARTAN MEDOXOMIL [Suspect]
     Indication: HYPERTENSION
     Dosage: 20 MG (20 MG, 1 IN 1 D), PER ORAL
     Route: 048
     Dates: start: 20080625
  2. NORVASC [Concomitant]
  3. ACETYLSALICYLIC ACID SRT [Concomitant]
  4. PLAVIX (CLOPIDOGREL SULFATE) (TABLET) (CLOPIDOGREL SULFATE) [Concomitant]
  5. KINEDAK (EPALRESTAT) (TABLET) (EPALRESTAT) [Concomitant]
  6. GLUCOBAY (ACARBOSE) (TABLET) (ACARBOSE) [Concomitant]
  7. PRAVASTATIN (PRAVASTATIN SODIUM) (TABLET) (PRAVASTATIN SODIUM) [Concomitant]
  8. OPALMON (LIMAPROST) (TABLET) (LIMAPROST) [Concomitant]
  9. JUVELA N (TOCOPHERYL NICOTINATE) (CAPSULE) (TOCOPHERYL NICOTINATE) [Concomitant]
  10. NOVORAPID 30MIX (INSULIN ASPART) (INJECTION) (INSULIN ASPART) [Concomitant]

REACTIONS (1)
  - HYPOGLYCAEMIA [None]
